FAERS Safety Report 13646369 (Version 1)
Quarter: 2017Q2

REPORT INFORMATION
  Report Type: Spontaneous
  Country: GB (occurrence: GB)
  Receive Date: 20170613
  Receipt Date: 20170613
  Transmission Date: 20170830
  Serious: Yes (Other)
  Sender: FDA-Public Use
  Company Number: GB-ACCORD-052464

PATIENT
  Age: 65 Year
  Sex: Male

DRUGS (5)
  1. FLUDARABINE/FLUDARABINE PHOSPHATE [Suspect]
     Active Substance: FLUDARABINE PHOSPHATE
     Indication: CHRONIC GRAFT VERSUS HOST DISEASE IN INTESTINE
  2. MELPHALAN. [Suspect]
     Active Substance: MELPHALAN
     Indication: CHRONIC GRAFT VERSUS HOST DISEASE IN INTESTINE
  3. MYCOPHENOLIC ACID. [Suspect]
     Active Substance: MYCOPHENOLIC ACID
     Indication: CHRONIC GRAFT VERSUS HOST DISEASE IN INTESTINE
  4. CICLOSPORIN [Suspect]
     Active Substance: CYCLOSPORINE
     Indication: CHRONIC GRAFT VERSUS HOST DISEASE IN INTESTINE
  5. METHYLPREDNISOLONE. [Suspect]
     Active Substance: METHYLPREDNISOLONE
     Indication: CHRONIC GRAFT VERSUS HOST DISEASE IN INTESTINE

REACTIONS (7)
  - Enterococcal infection [Recovering/Resolving]
  - Diarrhoea [Not Recovered/Not Resolved]
  - Chronic graft versus host disease in intestine [Unknown]
  - Malnutrition [Unknown]
  - Off label use [Unknown]
  - Transplant failure [Unknown]
  - Pancytopenia [Unknown]
